FAERS Safety Report 4580654-X (Version None)
Quarter: 2005Q1

REPORT INFORMATION
  Report Type: 
  Country: None (occurrence: None)
  Receive Date: 20050214
  Receipt Date: 20040506
  Transmission Date: 20050727
  Serious: No
  Sender: FDA-Public Use
  Company Number: US-GLAXOSMITHKLINE-A0509813A

PATIENT
  Sex: Male

DRUGS (2)
  1. LAMICTAL [Suspect]
     Indication: DEPRESSION
     Dosage: 250MG UNKNOWN
     Route: 048
     Dates: start: 20040101
  2. GEODON [Concomitant]

REACTIONS (2)
  - BALANCE DISORDER [None]
  - POISONING [None]
